FAERS Safety Report 4437805-7 (Version None)
Quarter: 2004Q3

REPORT INFORMATION
  Report Type: 
  Country: None (occurrence: None)
  Receive Date: 20040831
  Receipt Date: 20040706
  Transmission Date: 20050211
  Serious: Yes (Death, Hospitalization, Other)
  Sender: FDA-Public Use
  Company Number: DE-BRISTOL-MYERS SQUIBB COMPANY-12631982

PATIENT
  Age: 52 Year
  Sex: Female
  Weight: 74 kg

DRUGS (2)
  1. DOXORUBICIN HCL [Suspect]
     Indication: BREAST CANCER METASTATIC
     Dosage: C1: 24-APR-2004
     Route: 042
     Dates: start: 20040525, end: 20040525
  2. TAXOL [Suspect]
     Indication: BREAST CANCER METASTATIC
     Dosage: C1: 24-APR-2004
     Route: 042
     Dates: start: 20040525, end: 20040525

REACTIONS (3)
  - FEBRILE NEUTROPENIA [None]
  - LEUKOPENIA [None]
  - SEPSIS [None]
